FAERS Safety Report 9458074 (Version 1)
Quarter: 2013Q3

REPORT INFORMATION
  Report Type: Spontaneous
  Country: GB (occurrence: None)
  Receive Date: 20130812
  Receipt Date: 20130812
  Transmission Date: 20140515
  Serious: Yes (Other)
  Sender: FDA-Public Use
  Company Number: AUR-APL-2013-06498

PATIENT
  Age: 51 Year
  Sex: Male

DRUGS (1)
  1. AMLODIPINE [Suspect]
     Indication: HYPERTENSION
     Route: 048
     Dates: start: 20090602, end: 20130718

REACTIONS (7)
  - Fatigue [None]
  - Fatigue [None]
  - Exercise tolerance decreased [None]
  - Disturbance in attention [None]
  - Irritability [None]
  - Muscle spasms [None]
  - Unevaluable event [None]
